FAERS Safety Report 19913837 (Version 1)
Quarter: 2021Q4

REPORT INFORMATION
  Report Type: Spontaneous
  Country: KR (occurrence: KR)
  Receive Date: 20211004
  Receipt Date: 20211004
  Transmission Date: 20220304
  Serious: Yes (Other)
  Sender: FDA-Public Use
  Company Number: KR-GLAXOSMITHKLINE-KR2021APC203591

PATIENT
  Age: 39 Year
  Sex: Male
  Weight: 97.8 kg

DRUGS (8)
  1. KIVEXA [Suspect]
     Active Substance: ABACAVIR SULFATE\LAMIVUDINE
     Indication: HIV infection
     Dosage: 1 MG
     Route: 048
     Dates: start: 20130312
  2. FLUCONAZOLE [Suspect]
     Active Substance: FLUCONAZOLE
     Indication: Candida infection
     Dosage: UNK
     Route: 048
     Dates: start: 20170419, end: 20170420
  3. RITONAVIR [Suspect]
     Active Substance: RITONAVIR
     Indication: HIV infection
     Dosage: UNK
     Route: 048
     Dates: start: 20130312, end: 20170516
  4. HYDROCORTISONE [Suspect]
     Active Substance: HYDROCORTISONE
     Indication: Dermatitis
     Dosage: UNK
     Dates: start: 20160801
  5. LORATADINE [Suspect]
     Active Substance: LORATADINE
     Indication: Dermatitis
     Dosage: UNK
     Route: 048
     Dates: start: 20160218
  6. TERBINAFINE [Suspect]
     Active Substance: TERBINAFINE
     Indication: Dermatitis
     Dosage: UNK
     Route: 048
     Dates: start: 20130604
  7. WART AND ANTI-CORN PREPARATIONS [Concomitant]
     Indication: Dermatitis
     Dosage: UNK, SOLUTION
     Route: 061
     Dates: start: 20160627, end: 20160627
  8. AMLODIPINE AND VALSARTAN [Concomitant]
     Active Substance: AMLODIPINE\VALSARTAN
     Indication: Essential hypertension
     Dosage: UNK
     Dates: start: 20160627, end: 20160725

REACTIONS (3)
  - Diabetes mellitus [Not Recovered/Not Resolved]
  - Seborrhoeic dermatitis [Recovered/Resolved]
  - Mouth ulceration [Recovered/Resolved]

NARRATIVE: CASE EVENT DATE: 20170302
